FAERS Safety Report 9474852 (Version 1)
Quarter: 2013Q3

REPORT INFORMATION
  Report Type: Spontaneous
  Country: US (occurrence: US)
  Receive Date: 20130823
  Receipt Date: 20130823
  Transmission Date: 20140515
  Serious: Yes (Hospitalization, Other)
  Sender: FDA-Public Use
  Company Number: US-009507513-1308USA007561

PATIENT
  Sex: Male

DRUGS (2)
  1. MIRALAX [Suspect]
     Indication: COLONOSCOPY
     Dosage: UNK
     Route: 048
     Dates: start: 20130811, end: 20130811
  2. MIRALAX [Suspect]
     Indication: OFF LABEL USE

REACTIONS (2)
  - Loss of consciousness [Unknown]
  - Convulsion [Unknown]
